FAERS Safety Report 16128140 (Version 5)
Quarter: 2019Q4

REPORT INFORMATION
  Report Type: Report from Study
  Country: US (occurrence: US)
  Receive Date: 20190328
  Receipt Date: 20191020
  Transmission Date: 20200122
  Serious: Yes (Other)
  Sender: FDA-Public Use
  Company Number: PHHY2018US201264

PATIENT
  Age: 18 Year
  Sex: Female

DRUGS (3)
  1. KYMRIAH [Suspect]
     Active Substance: TISAGENLECLEUCEL
     Indication: B-CELL TYPE ACUTE LEUKAEMIA
     Dosage: ONCE/SINGLE
     Route: 041
     Dates: start: 20180208, end: 201802
  2. CYCLOPHOSPHAMIDE. [Concomitant]
     Active Substance: CYCLOPHOSPHAMIDE
     Indication: CHEMOTHERAPY
     Route: 065
  3. FLUDARABINE [Concomitant]
     Active Substance: FLUDARABINE PHOSPHATE
     Indication: CHEMOTHERAPY
     Route: 065

REACTIONS (23)
  - Hypogammaglobulinaemia [Unknown]
  - Memory impairment [Unknown]
  - Infection [Unknown]
  - Candida infection [Unknown]
  - Gastroenteritis viral [Recovering/Resolving]
  - Neurotoxicity [Recovered/Resolved]
  - Respiratory disorder [Unknown]
  - Neutrophil count decreased [Recovered/Resolved]
  - Staphylococcal infection [Unknown]
  - Headache [Recovered/Resolved]
  - Headache [Unknown]
  - Iron overload [Unknown]
  - Anosmia [Unknown]
  - Lacrimation increased [Unknown]
  - Cough [Unknown]
  - Malaise [Recovering/Resolving]
  - Asthenia [Unknown]
  - Oestrogen deficiency [Unknown]
  - Nasal septum disorder [Unknown]
  - Pseudomonas infection [Unknown]
  - Pneumonia [Unknown]
  - Feeling abnormal [Unknown]
  - Lymphocyte count decreased [Unknown]

NARRATIVE: CASE EVENT DATE: 20180208
